FAERS Safety Report 18869428 (Version 5)
Quarter: 2022Q1

REPORT INFORMATION
  Report Type: Report from Study
  Country: CN (occurrence: CN)
  Receive Date: 20210209
  Receipt Date: 20220204
  Transmission Date: 20220424
  Serious: Yes (Hospitalization)
  Sender: FDA-Public Use
  Company Number: CN-JNJFOC-20210201271

PATIENT
  Age: 65 Year
  Sex: Female
  Weight: 60.5 kg

DRUGS (3)
  1. ERDAFITINIB [Suspect]
     Active Substance: ERDAFITINIB
     Indication: Cholangiocarcinoma
     Dosage: DOSE ALSO REPORTED AS 4 MG /DAY. MED KIT NUMBER 14124.
     Route: 048
     Dates: start: 20200519, end: 20210119
  2. ERDAFITINIB [Suspect]
     Active Substance: ERDAFITINIB
     Dosage: CYCLE 9, MED KIT 14124
     Route: 048
     Dates: start: 20201230
  3. TERBINAFINE HYDROCHLORIDE [Concomitant]
     Active Substance: TERBINAFINE HYDROCHLORIDE
     Indication: Onychomadesis
     Route: 061
     Dates: start: 20201127

REACTIONS (1)
  - Pneumonia [Recovering/Resolving]

NARRATIVE: CASE EVENT DATE: 20201225
